FAERS Safety Report 7791531-5 (Version None)
Quarter: 2011Q4

REPORT INFORMATION
  Report Type: 
  Country: None (occurrence: None)
  Receive Date: 20111003
  Receipt Date: 20110928
  Transmission Date: 20120403
  Serious: Yes (Death, Life-Threatening, Hospitalization)
  Sender: FDA-Public Use
  Company Number: SE-JNJFOC-20110911407

PATIENT
  Age: 59 Year
  Sex: Male

DRUGS (8)
  1. LEVOFLOXACIN [Suspect]
     Indication: ATYPICAL MYCOBACTERIAL INFECTION
     Route: 065
     Dates: start: 20110519, end: 20110530
  2. PREDNISOLONE [Concomitant]
     Indication: PAIN IN EXTREMITY
     Route: 065
     Dates: start: 20110101, end: 20110601
  3. COLCHICINE [Suspect]
     Indication: GOUT
     Route: 048
     Dates: start: 20110427, end: 20110530
  4. FLUCONAZOLE [Concomitant]
     Route: 065
     Dates: end: 20110530
  5. WARFARIN SODIUM [Concomitant]
     Route: 065
     Dates: end: 20110601
  6. LYRICA [Concomitant]
     Route: 065
     Dates: end: 20110530
  7. CLARITHROMYCIN [Suspect]
     Indication: ATYPICAL MYCOBACTERIAL INFECTION
     Route: 048
     Dates: start: 20110519, end: 20110530
  8. AMIKACIN SULFATE [Suspect]
     Indication: ATYPICAL MYCOBACTERIAL INFECTION
     Route: 065
     Dates: start: 20110519, end: 20110530

REACTIONS (3)
  - DIARRHOEA [None]
  - PANCYTOPENIA [None]
  - RESPIRATORY DISTRESS [None]
